FAERS Safety Report 12899889 (Version 2)
Quarter: 2017Q1

REPORT INFORMATION
  Report Type: Spontaneous
  Country: US (occurrence: US)
  Receive Date: 20161101
  Receipt Date: 20170203
  Transmission Date: 20170428
  Serious: Yes (Hospitalization)
  Sender: FDA-Public Use
  Company Number: US-TEVA-708572ACC

PATIENT
  Age: 59 Year
  Sex: Male

DRUGS (2)
  1. TREANDA [Suspect]
     Active Substance: BENDAMUSTINE HYDROCHLORIDE
     Indication: AMYLOIDOSIS
     Dosage: ON DAYS 1 AND 2 CYCLIC
     Route: 042
  2. DEXAMETHASONE. [Concomitant]
     Active Substance: DEXAMETHASONE
     Indication: AMYLOIDOSIS
     Dosage: DAYS 1, 8, 15, AND 22 CYCLIC
     Route: 048

REACTIONS (2)
  - Nephrogenic diabetes insipidus [Recovering/Resolving]
  - Off label use [Unknown]
